FAERS Safety Report 5745387-2 (Version None)
Quarter: 2008Q2

REPORT INFORMATION
  Report Type: 
  Country: None (occurrence: None)
  Receive Date: 20080521
  Receipt Date: 20080514
  Transmission Date: 20081010
  Serious: Yes (Death, Hospitalization)
  Sender: FDA-Public Use
  Company Number: US-BAXTER-2008BH004615

PATIENT
  Age: 68 Year
  Sex: Female
  Weight: 54 kg

DRUGS (2)
  1. HEPARIN SODIUM [Suspect]
     Indication: PLASMAPHERESIS
     Dosage: DOSE UNIT:UNKNOWN
     Route: 065
     Dates: start: 19980701, end: 19980801
  2. ANTIBIOTICS [Concomitant]
     Indication: DRUG USE FOR UNKNOWN INDICATION
     Dosage: DOSE UNIT:UNKNOWN
     Route: 065

REACTIONS (5)
  - MYASTHENIC SYNDROME [None]
  - PURPURA [None]
  - RESPIRATORY FAILURE [None]
  - RETROPERITONEAL HAEMORRHAGE [None]
  - SMALL CELL LUNG CANCER STAGE UNSPECIFIED [None]
